FAERS Safety Report 8383533-5 (Version None)
Quarter: 2012Q2

REPORT INFORMATION
  Report Type: 
  Country: None (occurrence: None)
  Receive Date: 20120524
  Receipt Date: 20120515
  Transmission Date: 20120825
  Serious: Yes (Other)
  Sender: FDA-Public Use
  Company Number: US-ASTRAZENECA-2010SE45015

PATIENT
  Age: 67 Year
  Sex: Female
  Weight: 69.4 kg

DRUGS (8)
  1. NEXIUM [Suspect]
     Route: 048
  2. PREDNISONE [Concomitant]
  3. PRILOSEC [Suspect]
     Route: 048
  4. PRILOSEC OTC [Suspect]
     Indication: GASTROOESOPHAGEAL REFLUX DISEASE
     Route: 048
  5. NAPROXEN (ALEVE) [Concomitant]
  6. XANAX [Concomitant]
  7. PREVACID [Concomitant]
  8. NEXIUM [Suspect]
     Indication: GASTROOESOPHAGEAL REFLUX DISEASE
     Route: 048

REACTIONS (19)
  - CHEST DISCOMFORT [None]
  - DISORIENTATION [None]
  - OFF LABEL USE [None]
  - RENAL FAILURE ACUTE [None]
  - APHASIA [None]
  - THROAT IRRITATION [None]
  - MYALGIA [None]
  - GASTROOESOPHAGEAL REFLUX DISEASE [None]
  - FEELING ABNORMAL [None]
  - MALAISE [None]
  - WHEEZING [None]
  - DRUG INEFFECTIVE [None]
  - APHAGIA [None]
  - PAIN [None]
  - DYSPEPSIA [None]
  - INTENTIONAL DRUG MISUSE [None]
  - CONVULSION [None]
  - BACK DISORDER [None]
  - VOMITING [None]
